FAERS Safety Report 12677828 (Version 2)
Quarter: 2016Q4

REPORT INFORMATION
  Report Type: Spontaneous
  Country: US (occurrence: US)
  Receive Date: 20160823
  Receipt Date: 20161111
  Transmission Date: 20170207
  Serious: Yes (Other)
  Sender: FDA-Public Use
  Company Number: US-SEPTODONT-201603526

PATIENT
  Age: 43 Year
  Sex: Female
  Weight: 68 kg

DRUGS (5)
  1. LITHIUM. [Concomitant]
     Active Substance: LITHIUM
     Indication: MAJOR DEPRESSION
  2. NARDIL 15 MG TABLET, FILM COATED [Concomitant]
     Indication: ANTIDEPRESSANT THERAPY
  3. NEURONTIN [Concomitant]
     Active Substance: GABAPENTIN
     Indication: POST-TRAUMATIC NEURALGIA
  4. MEPIVACAINE [Suspect]
     Active Substance: MEPIVACAINE\MEPIVACAINE HYDROCHLORIDE
     Indication: LOCAL ANAESTHESIA
     Dosage: ADMINISTERED VIA IANB TECHNIQUE WITH SELF-ASPIRATING SYRINGE.
     Route: 004
     Dates: start: 201608, end: 201608
  5. LUNESTA [Concomitant]
     Active Substance: ESZOPICLONE
     Indication: SEDATIVE THERAPY

REACTIONS (3)
  - Blood pressure increased [Recovered/Resolved]
  - Cardiac flutter [Recovered/Resolved]
  - Headache [Recovered/Resolved]

NARRATIVE: CASE EVENT DATE: 201608
